FAERS Safety Report 17124363 (Version 2)
Quarter: 2020Q1

REPORT INFORMATION
  Report Type: Spontaneous
  Country: US (occurrence: US)
  Receive Date: 20191206
  Receipt Date: 20200117
  Transmission Date: 20200409
  Serious: No
  Sender: FDA-Public Use
  Company Number: US-ASTRAZENECA-2019SF60467

PATIENT
  Age: 659 Month
  Sex: Female
  Weight: 103 kg

DRUGS (3)
  1. BYDUREON [Suspect]
     Active Substance: EXENATIDE
     Indication: TYPE 2 DIABETES MELLITUS
     Route: 058
     Dates: start: 201908
  2. OXYBUTYNIN. [Concomitant]
     Active Substance: OXYBUTYNIN CHLORIDE
     Indication: INCONTINENCE
     Dosage: 5.0MG UNKNOWN
     Route: 048
     Dates: end: 201908
  3. GLIMEPIRIDE. [Concomitant]
     Active Substance: GLIMEPIRIDE
     Indication: TYPE 2 DIABETES MELLITUS
     Dosage: 1 MG IN THE MORNING AND 1.5 MG BEFORE DINNER, TWO TIMES A DAY
     Route: 048
     Dates: start: 201810

REACTIONS (9)
  - Injection site extravasation [Not Recovered/Not Resolved]
  - Injection site pain [Not Recovered/Not Resolved]
  - Wrong technique in device usage process [Recovered/Resolved]
  - Injection site scar [Not Recovered/Not Resolved]
  - Weight loss poor [Not Recovered/Not Resolved]
  - Device issue [Unknown]
  - Injection site mass [Not Recovered/Not Resolved]
  - Intentional device misuse [Unknown]
  - Therapeutic response unexpected [Unknown]

NARRATIVE: CASE EVENT DATE: 201908
